FAERS Safety Report 13177971 (Version 2)
Quarter: 2017Q2

REPORT INFORMATION
  Report Type: Report from Study
  Country: US (occurrence: US)
  Receive Date: 20170202
  Receipt Date: 20170405
  Transmission Date: 20170830
  Serious: Yes (Other)
  Sender: FDA-Public Use
  Company Number: US-UCBSA-2017003394

PATIENT
  Sex: Female
  Weight: 63 kg

DRUGS (1)
  1. LEVETIRACETAM. [Suspect]
     Active Substance: LEVETIRACETAM
     Indication: SEIZURE
     Dosage: 1500 MG, 2X/DAY (BID)
     Route: 048
     Dates: start: 201609

REACTIONS (2)
  - Drug ineffective [Unknown]
  - Gestational trophoblastic tumour [Unknown]

NARRATIVE: CASE EVENT DATE: 2016
